FAERS Safety Report 6798279-4 (Version None)
Quarter: 2010Q2

REPORT INFORMATION
  Report Type: 
  Country: None (occurrence: None)
  Receive Date: 20100623
  Receipt Date: 20100429
  Transmission Date: 20101027
  Serious: Yes (Life-Threatening, Hospitalization, Other)
  Sender: FDA-Public Use
  Company Number: 20108534

PATIENT
  Age: 52 Year
  Sex: Male

DRUGS (1)
  1. LIORESAL [Suspect]
     Indication: MUSCLE SPASTICITY
     Dosage: 549.6 MCG, DAILY, INTRATHECAL
     Route: 037

REACTIONS (7)
  - CONDITION AGGRAVATED [None]
  - DRUG INEFFECTIVE [None]
  - HYPOTONIA [None]
  - IMPLANT SITE INFECTION [None]
  - MUSCLE SPASTICITY [None]
  - OVERDOSE [None]
  - PROCEDURAL COMPLICATION [None]
